FAERS Safety Report 7028316-3 (Version None)
Quarter: 2010Q4

REPORT INFORMATION
  Report Type: 
  Country: None (occurrence: None)
  Receive Date: 20101005
  Receipt Date: 20100922
  Transmission Date: 20110411
  Serious: Yes (Death)
  Sender: FDA-Public Use
  Company Number: JP-ROCHE-724872

PATIENT
  Sex: Male
  Weight: 57 kg

DRUGS (5)
  1. AVASTIN [Suspect]
     Indication: LARGE CELL CARCINOMA OF THE RESPIRATORY TRACT STAGE UNSPECIFIED
     Route: 041
     Dates: start: 20100803, end: 20100803
  2. CARBOPLATIN [Suspect]
     Indication: LUNG ADENOCARCINOMA METASTATIC
     Dosage: DOSAGE IS UNCERTAIN
     Route: 041
     Dates: start: 20100803, end: 20100803
  3. ALIMTA [Suspect]
     Indication: LUNG ADENOCARCINOMA METASTATIC
     Dosage: DOSAGE IS UNCERTAIN
     Route: 041
     Dates: start: 20100803, end: 20100803
  4. SEROTONE [Concomitant]
     Dosage: NOTE: DOSAGE IS UNCERTAIN.
     Route: 041
     Dates: start: 20100803, end: 20100803
  5. DECADRON [Concomitant]
     Dosage: NOTE: DOSAGE IS UNCERTAIN.
     Route: 041
     Dates: start: 20100803, end: 20100803

REACTIONS (8)
  - CONDITION AGGRAVATED [None]
  - DEPRESSED LEVEL OF CONSCIOUSNESS [None]
  - METASTASES TO GASTROINTESTINAL TRACT [None]
  - NEUTROPHIL COUNT DECREASED [None]
  - PYREXIA [None]
  - SEPSIS [None]
  - SMALL INTESTINAL PERFORATION [None]
  - WHITE BLOOD CELL COUNT DECREASED [None]
